FAERS Safety Report 6991385-0 (Version None)
Quarter: 2010Q3

REPORT INFORMATION
  Report Type: 
  Country: None (occurrence: None)
  Receive Date: 20100916
  Receipt Date: 20090820
  Transmission Date: 20110219
  Serious: No
  Sender: FDA-Public Use
  Company Number: US-WYE-H10672809

PATIENT
  Sex: Female
  Weight: 90.8 kg

DRUGS (6)
  1. PRISTIQ [Suspect]
     Indication: DEPRESSION
     Route: 048
     Dates: start: 20090701
  2. LISINOPRIL [Concomitant]
     Dosage: DOSE UNKNOWN, DAILY
     Route: 048
  3. RITALIN [Concomitant]
     Dosage: DOSE UNKNOWN, DAILY
     Route: 048
  4. PRILOSEC [Concomitant]
     Dosage: DOSE UNKNOWN, DAILY
     Route: 048
  5. INDERAL [Concomitant]
     Dosage: DOSE UNKNOWN, DAILY
     Route: 048
  6. VALIUM [Concomitant]
     Dosage: DOSE UNKNOWN, DAILY
     Route: 048

REACTIONS (1)
  - NAUSEA [None]
